FAERS Safety Report 23520921 (Version 1)
Quarter: 2024Q1

REPORT INFORMATION
  Report Type: 
  Country: None (occurrence: None)
  Receive Date: 20240214
  Receipt Date: 20240214
  Transmission Date: 20240410
  Serious: No
  Sender: FDA-Public Use
  Company Number: US-ROCHE-3208845

PATIENT
  Age: 67 Year
  Weight: 59.9 kg

DRUGS (26)
  1. VENETOCLAX [Suspect]
     Active Substance: VENETOCLAX
     Dosage: EVERY DAY 1 TO 5. ON 11/OCT/2022, HE RECEIVED MOST RECENT DOSE (400 MG) OF VENETOCLAX PRIOR TO SAE,
     Dates: start: 20220902
  2. POLATUZUMAB VEDOTIN [Suspect]
     Active Substance: POLATUZUMAB VEDOTIN
     Dosage: ON 11/OCT/2022, 20-SEP-2022, 31-AUG-2022 HE RECEIVED MOST RECENT DOSE (110 MG) OF POLATUZUMAB VEDOTI
     Dates: start: 20220830
  3. RITUXIMAB [Suspect]
     Active Substance: RITUXIMAB
     Dosage: ON 11/OCT/2022, 20/SEP/2022 31/AUG/2022, HE RECEIVED MOST RECENT DOSE (375 MG) OF RITUXIMAB PRIOR TO
     Dates: start: 20220830
  4. CYCLOPHOSPHAMIDE [Suspect]
     Active Substance: CYCLOPHOSPHAMIDE
     Dosage: ON 11/OCT/2022, 20-SEP-2022 ,31-AUG-2022 HE RECEIVED MOST RECENT DOSE (1200 MG) OF CYCLOPHOSPHAMIDE
     Dates: start: 20220830
  5. DOXORUBICIN [Suspect]
     Active Substance: DOXORUBICIN
     Dosage: ON 11/OCT/2022, 20-SEP-2022, 31-AUG-2022 HE RECEIVED MOST RECENT DOSE (85 MG) OF DOXORUBICIN PRIOR T
     Dates: start: 20220830
  6. PREDNISONE [Suspect]
     Active Substance: PREDNISONE
     Dosage: EVERY DAY 1 TO 5. ON 30/AUG/2022, 15/OCT/2022, 04/SEP/2022 HE RECEIVED MOST RECENT DOSE OF 100 MG OF
     Dates: start: 20220830, end: 20220830
  7. PREDNISONE [Suspect]
     Active Substance: PREDNISONE
     Dates: start: 20220920, end: 20220920
  8. PREDNISONE [Suspect]
     Active Substance: PREDNISONE
     Dates: start: 20221011, end: 20221011
  9. METOCLOPRAMIDE [Concomitant]
     Active Substance: METOCLOPRAMIDE
     Dates: start: 20220906
  10. GEMTESA [Concomitant]
     Active Substance: VIBEGRON
     Dates: start: 20220906
  11. NORCO [Concomitant]
     Active Substance: ACETAMINOPHEN\HYDROCODONE BITARTRATE
     Dosage: 5 MG - 325 MG
  12. PEGFILGRASTIM [Concomitant]
     Active Substance: PEGFILGRASTIM
     Dates: start: 20220831, end: 20220831
  13. PEGFILGRASTIM [Concomitant]
     Active Substance: PEGFILGRASTIM
     Dates: start: 20220921, end: 20220921
  14. PEGFILGRASTIM [Concomitant]
     Active Substance: PEGFILGRASTIM
     Dates: start: 20221012, end: 20221012
  15. PEGFILGRASTIM [Concomitant]
     Active Substance: PEGFILGRASTIM
     Dates: start: 20221102, end: 20221102
  16. PREDNISONE ACETATE [Concomitant]
     Active Substance: PREDNISONE ACETATE
     Dates: start: 20220830, end: 20220830
  17. PREDNISONE ACETATE [Concomitant]
     Active Substance: PREDNISONE ACETATE
     Dates: start: 20221101, end: 20221101
  18. PREDNISONE ACETATE [Concomitant]
     Active Substance: PREDNISONE ACETATE
     Dates: start: 20220920, end: 20220920
  19. PREDNISONE ACETATE [Concomitant]
     Active Substance: PREDNISONE ACETATE
     Dates: start: 20221011, end: 20221011
  20. ACETAMINOPHEN [Concomitant]
     Active Substance: ACETAMINOPHEN
     Dates: start: 20221011, end: 20221011
  21. BENZONATATE [Concomitant]
     Active Substance: BENZONATATE
     Dosage: 100 MG, 3/DAYS
     Dates: start: 20220928, end: 20221004
  22. BENZONATATE [Concomitant]
     Active Substance: BENZONATATE
     Dosage: 300 MG, 3/DAYS
     Dates: start: 20221020, end: 20221022
  23. ENOXAPARIN [Concomitant]
     Active Substance: ENOXAPARIN
     Dates: start: 20220928, end: 20221004
  24. ACETAMINOPHEN\HYDROCODONE [Concomitant]
     Active Substance: ACETAMINOPHEN\HYDROCODONE
     Dosage: 7.5 MG-325 MG
     Dates: start: 20221020, end: 20221022
  25. VANCOMYCIN [Concomitant]
     Active Substance: VANCOMYCIN
     Dates: start: 20221020, end: 20221022
  26. CODEINE PHOSPHATE\GUAIFENESIN [Concomitant]
     Active Substance: CODEINE PHOSPHATE\GUAIFENESIN
     Dates: start: 20221021, end: 20221022

REACTIONS (5)
  - Diverticulitis [None]
  - Rhinovirus infection [None]
  - Febrile neutropenia [None]
  - Sepsis [None]
  - Anaemia [None]

NARRATIVE: CASE EVENT DATE: 20220831
